FAERS Safety Report 23499284 (Version 1)
Quarter: 2024Q1

REPORT INFORMATION
  Report Type: Spontaneous
  Country: US (occurrence: US)
  Receive Date: 20240208
  Receipt Date: 20240208
  Transmission Date: 20240410
  Serious: Yes (Hospitalization, Other)
  Sender: FDA-Public Use
  Company Number: US-AVET LIFESCIENCES LTD-2024-AVET-000021

PATIENT
  Age: 74 Year
  Sex: Male

DRUGS (8)
  1. LEFLUNOMIDE [Interacting]
     Active Substance: LEFLUNOMIDE
     Indication: Polyomavirus viraemia
     Dosage: 20 MILLIGRAM, QD (20MG DAILY)
  2. ROSUVASTATIN [Interacting]
     Active Substance: ROSUVASTATIN
     Indication: Product used for unknown indication
     Dosage: 40 MILLIGRAM, QD (40MG DAILY)
  3. PREDNISONE [Concomitant]
     Active Substance: PREDNISONE
     Indication: Immunosuppression
     Dosage: 10 MILLIGRAM, QD, DAILY
  4. VALGANCICLOVIR [Concomitant]
     Active Substance: VALGANCICLOVIR
     Indication: Prophylaxis
     Dosage: 450 MILLIGRAM
  5. SULFAMETHOXAZOLE\TRIMETHOPRIM [Concomitant]
     Active Substance: SULFAMETHOXAZOLE\TRIMETHOPRIM
     Indication: Prophylaxis
     Dosage: DOUBLE STRENGTH THRICE WEEKLY
  6. CLOTRIMAZOLE [Concomitant]
     Active Substance: CLOTRIMAZOLE
     Dosage: 10 MILLIGRAM, 4 DOSE PER 1 D (10 MG TROCHE FOUR TIMES DAILY)
  7. CYCLOSPORINE [Concomitant]
     Active Substance: CYCLOSPORINE
     Indication: Immunosuppression
     Dosage: 150 MILLIGRAM, BID (150MG TWICE DAILY)
  8. CYCLOSPORINE [Concomitant]
     Active Substance: CYCLOSPORINE
     Dosage: 75 MILLIGRAM, BID ( EMPIRICALLY REDUCED (75 MG TWICE DAILY))

REACTIONS (4)
  - Rhabdomyolysis [Unknown]
  - Acute kidney injury [Unknown]
  - Drug interaction [Unknown]
  - Off label use [Unknown]
